FAERS Safety Report 10368792 (Version 1)
Quarter: 2014Q3

REPORT INFORMATION
  Report Type: Spontaneous
  Country: GB (occurrence: GB)
  Receive Date: 20140807
  Receipt Date: 20140807
  Transmission Date: 20150326
  Serious: Yes (Other)
  Sender: FDA-Public Use
  Company Number: GB-MYLAN-2014M1000525

PATIENT

DRUGS (3)
  1. DEFEROXAMINE [Concomitant]
     Active Substance: DEFEROXAMINE\DEFEROXAMINE MESYLATE
     Indication: CHELATION THERAPY
     Dosage: 3G/KG; 5 NIGHTS/WEEK
     Route: 065
  2. PAMIDRONIC ACID [Suspect]
     Active Substance: PAMIDRONIC ACID
     Dosage: 60MG/MONTH
     Route: 042
  3. ALENDRONATE SODIUM. [Suspect]
     Active Substance: ALENDRONATE SODIUM
     Dosage: 300MG
     Route: 048

REACTIONS (4)
  - Thalassaemia beta [Unknown]
  - Osteonecrosis of jaw [Not Recovered/Not Resolved]
  - Condition aggravated [Unknown]
  - Osteomyelitis [Unknown]
